FAERS Safety Report 6579871-9 (Version None)
Quarter: 2010Q1

REPORT INFORMATION
  Report Type: 
  Country: None (occurrence: None)
  Receive Date: 20100209
  Receipt Date: 20100209
  Transmission Date: 20100710
  Serious: Yes (Disabling)
  Sender: FDA-Public Use
  Company Number: None

PATIENT
  Age: 34 Year
  Sex: Female
  Weight: 128.8216 kg

DRUGS (4)
  1. LEVAQUIN [Suspect]
     Indication: BRONCHITIS
     Dosage: 1 QD PO
     Route: 048
     Dates: start: 20020201, end: 20090201
  2. LEVAQUIN [Suspect]
     Indication: SINUSITIS
     Dosage: 1 QD PO
     Route: 048
     Dates: start: 20020201, end: 20090201
  3. LEVAQUIN [Suspect]
     Indication: URINARY TRACT INFECTION
     Dosage: 1 QD PO
     Route: 048
     Dates: start: 20020201, end: 20090201
  4. THYROID TAB [Suspect]
     Indication: HYPOTHYROIDISM
     Dosage: 1 QD PO
     Route: 048
     Dates: start: 20090205, end: 20100131

REACTIONS (4)
  - IMPAIRED WORK ABILITY [None]
  - PALPITATIONS [None]
  - ROTATOR CUFF REPAIR [None]
  - TENDONITIS [None]
